FAERS Safety Report 10370942 (Version 5)
Quarter: 2017Q1

REPORT INFORMATION
  Report Type: Report from Study
  Country: HK (occurrence: HK)
  Receive Date: 20140808
  Receipt Date: 20170307
  Transmission Date: 20170428
  Serious: Yes (Hospitalization)
  Sender: FDA-Public Use
  Company Number: HK-OTSUKA-JP-2014-16219

PATIENT
  Age: 66 Year
  Sex: Male

DRUGS (9)
  1. CILOSTAZOL. [Suspect]
     Active Substance: CILOSTAZOL
     Indication: CEREBRAL INFARCTION
     Dosage: 100 MG, QD
     Route: 048
     Dates: start: 20130828, end: 20131230
  2. PROBUCOL [Suspect]
     Active Substance: PROBUCOL
     Indication: CEREBRAL INFARCTION
     Dosage: 250 MG, BID
     Route: 048
     Dates: start: 20130828, end: 20131230
  3. PROBUCOL [Suspect]
     Active Substance: PROBUCOL
     Dosage: 250 MG, BID
     Route: 048
     Dates: start: 20131231
  4. CILOSTAZOL. [Suspect]
     Active Substance: CILOSTAZOL
     Dosage: 100 MG, QD
     Route: 048
     Dates: start: 20131231, end: 20140113
  5. FAMOTIDINE. [Concomitant]
     Active Substance: FAMOTIDINE
     Indication: PRODUCT USED FOR UNKNOWN INDICATION
     Dosage: UNK
     Route: 065
     Dates: start: 20130821
  6. CILOSTAZOL. [Suspect]
     Active Substance: CILOSTAZOL
     Dosage: 100 MG, QD
     Route: 048
     Dates: start: 20140324
  7. BACLOFEN. [Concomitant]
     Active Substance: BACLOFEN
     Indication: PRODUCT USED FOR UNKNOWN INDICATION
     Dosage: UNK
     Route: 065
     Dates: start: 20140922
  8. SIMVASTATIN. [Concomitant]
     Active Substance: SIMVASTATIN
     Indication: PRODUCT USED FOR UNKNOWN INDICATION
     Dosage: UNK
     Route: 065
     Dates: start: 20110521
  9. AMLODIPINE BESYLATE. [Concomitant]
     Active Substance: AMLODIPINE BESYLATE
     Indication: PRODUCT USED FOR UNKNOWN INDICATION
     Dosage: UNK
     Route: 065
     Dates: start: 20120927

REACTIONS (3)
  - Neck mass [Recovered/Resolved]
  - Hemiparesis [Recovered/Resolved]
  - Cervical myelopathy [Recovered/Resolved with Sequelae]

NARRATIVE: CASE EVENT DATE: 20131230
